FAERS Safety Report 4521592-8 (Version None)
Quarter: 2004Q4

REPORT INFORMATION
  Report Type: 
  Country: None (occurrence: None)
  Receive Date: 20041208
  Receipt Date: 20041208
  Transmission Date: 20050328
  Serious: Yes (Hospitalization)
  Sender: FDA-Public Use
  Company Number: None

PATIENT
  Sex: Female
  Weight: 80.7403 kg

DRUGS (5)
  1. OXALIPLATIN    100 MG VIAL   SANOFI [Suspect]
     Indication: COLON CANCER METASTATIC
     Dosage: 120 MG  EVERY 2-3 WEEK   INTRAVENOUS
     Route: 042
     Dates: start: 20040524, end: 20041108
  2. LEUCOVORIN [Concomitant]
  3. FLUOROURACIL [Concomitant]
  4. DOLASETRON [Concomitant]
  5. DEXAMETHASONE [Concomitant]

REACTIONS (5)
  - BACK PAIN [None]
  - CHILLS [None]
  - HEADACHE [None]
  - INFUSION RELATED REACTION [None]
  - TREMOR [None]
